FAERS Safety Report 18767076 (Version 1)
Quarter: 2021Q1

REPORT INFORMATION
  Report Type: Spontaneous
  Country: DE (occurrence: BE)
  Receive Date: 20210121
  Receipt Date: 20210121
  Transmission Date: 20210419
  Serious: Yes (Hospitalization)
  Sender: FDA-Public Use
  Company Number: BE-ENDO PHARMACEUTICALS INC-2021-000464

PATIENT
  Sex: Male

DRUGS (2)
  1. AVEED [Suspect]
     Active Substance: TESTOSTERONE UNDECANOATE
     Indication: PRODUCT USED FOR UNKNOWN INDICATION
     Dosage: UNK UNKNOWN, UNKNOWN; 2 INJECTIONS, 1.5 MINTHS APART
     Route: 065
  2. TESTARZON [Concomitant]
     Indication: PRODUCT USED FOR UNKNOWN INDICATION
     Dosage: UNK UNKNOWN, UNKNOWN
     Route: 065

REACTIONS (9)
  - Mental disorder [Unknown]
  - Tendonitis [Unknown]
  - Erectile dysfunction [Unknown]
  - Loss of libido [Unknown]
  - Sexually inappropriate behaviour [Unknown]
  - Red blood cell count increased [Unknown]
  - Phlebotomy [Unknown]
  - Depression [Unknown]
  - Muscle atrophy [Unknown]
